FAERS Safety Report 19050171 (Version 1)
Quarter: 2021Q1

REPORT INFORMATION
  Report Type: Spontaneous
  Country: US (occurrence: US)
  Receive Date: 20210323
  Receipt Date: 20210323
  Transmission Date: 20210420
  Serious: Yes (Hospitalization)
  Sender: FDA-Public Use
  Company Number: None

PATIENT
  Age: 65 Year
  Sex: Male
  Weight: 116 kg

DRUGS (4)
  1. ALBUTEROL. [Concomitant]
     Active Substance: ALBUTEROL
     Dates: start: 20210311, end: 20210311
  2. REMDESIVIR. [Concomitant]
     Active Substance: REMDESIVIR
     Dates: start: 20210311, end: 20210311
  3. SODIUM CHLORIDE 0.9 [Concomitant]
     Dates: start: 20210308, end: 20210308
  4. BAMLANIVIMAB. [Suspect]
     Active Substance: BAMLANIVIMAB
     Indication: CORONAVIRUS INFECTION
     Dosage: ?          OTHER FREQUENCY:ONCE;?
     Route: 041
     Dates: start: 20210308, end: 20210308

REACTIONS (5)
  - C-reactive protein increased [None]
  - Hypoxia [None]
  - Dyspnoea [None]
  - Pleuritic pain [None]
  - Cough [None]

NARRATIVE: CASE EVENT DATE: 20210310
